FAERS Safety Report 22661241 (Version 1)
Quarter: 2023Q2

REPORT INFORMATION
  Report Type: Spontaneous
  Country: US (occurrence: US)
  Receive Date: 20230630
  Receipt Date: 20230630
  Transmission Date: 20230721
  Serious: No
  Sender: FDA-Public Use
  Company Number: US-JAZZ PHARMACEUTICALS-2022-US-026377

PATIENT
  Sex: Male

DRUGS (5)
  1. EPIDIOLEX [Suspect]
     Active Substance: CANNABIDIOL
     Indication: Seizure
     Dosage: 8 MILLILITER, BID
     Dates: start: 20220121
  2. EPIDIOLEX [Suspect]
     Active Substance: CANNABIDIOL
     Dosage: 10 MILLIGRAM
  3. KEPPRA XR [Concomitant]
     Active Substance: LEVETIRACETAM
     Dosage: UNK
  4. ETHOSUXIMIDE [Concomitant]
     Active Substance: ETHOSUXIMIDE
     Dosage: 750MG AM + 500 MG AFTERNOON/EVENINGUNK
  5. VIMPAT [Concomitant]
     Active Substance: LACOSAMIDE
     Dosage: INCREASED BY 50MG TO 250MG AM + 200 MG AT NIGHT

REACTIONS (1)
  - Drug ineffective [Unknown]
